FAERS Safety Report 23423813 (Version 3)
Quarter: 2024Q4

REPORT INFORMATION
  Report Type: Spontaneous
  Country: US (occurrence: US)
  Receive Date: 20240119
  Receipt Date: 20241110
  Transmission Date: 20250115
  Serious: No
  Sender: SANOFI AVENTIS
  Company Number: US-SA-SAC20240116001342

PATIENT
  Age: 44 Year
  Sex: Female
  Weight: 59.4 kg

DRUGS (4)
  1. DUPIXENT [Suspect]
     Active Substance: DUPILUMAB
     Indication: Illness
     Dosage: 300 MG, QOW
     Route: 058
  2. LINZESS [Concomitant]
     Active Substance: LINACLOTIDE
     Dosage: UNK
  3. ESCITALOPRAM OXALATE [Concomitant]
     Active Substance: ESCITALOPRAM OXALATE
     Dosage: UNK
  4. AMLODIPINE BESYLATE [Concomitant]
     Active Substance: AMLODIPINE BESYLATE
     Dosage: UNK

REACTIONS (5)
  - Anxiety [Not Recovered/Not Resolved]
  - Myalgia [Not Recovered/Not Resolved]
  - Pruritus [Unknown]
  - Skin exfoliation [Unknown]
  - Rash [Unknown]

NARRATIVE: CASE EVENT DATE: 20231001
